FAERS Safety Report 5227797-5 (Version None)
Quarter: 2007Q1

REPORT INFORMATION
  Report Type: 
  Country: None (occurrence: None)
  Receive Date: 20070202
  Receipt Date: 20070124
  Transmission Date: 20070707
  Serious: Yes (Hospitalization)
  Sender: FDA-Public Use
  Company Number: FR-PFIZER INC-2007007126

PATIENT
  Age: 58 Year
  Sex: Female
  Weight: 76 kg

DRUGS (3)
  1. AMLOR [Suspect]
     Route: 048
  2. LIPANTHYL [Suspect]
     Route: 048
  3. COTAREG [Suspect]
     Route: 048

REACTIONS (1)
  - PULMONARY EMBOLISM [None]
